FAERS Safety Report 6248293-2 (Version None)
Quarter: 2009Q2

REPORT INFORMATION
  Report Type: 
  Country: None (occurrence: None)
  Receive Date: 20090629
  Receipt Date: 20090617
  Transmission Date: 20091009
  Serious: Yes (Hospitalization, Disabling)
  Sender: FDA-Public Use
  Company Number: PHHY2009GB24803

PATIENT
  Age: 65 Year
  Sex: Female

DRUGS (6)
  1. ZOLEDRONIC ACID [Suspect]
     Indication: OSTEOPOROSIS
     Dosage: 5 MG, UNK
     Route: 042
     Dates: start: 20090422
  2. ADCAL-D3 [Concomitant]
     Indication: OSTEOPOROSIS
     Dosage: 1 DF, QD
     Route: 048
     Dates: start: 19990202
  3. ALFACALCIDOL [Concomitant]
     Indication: OSTEOPOROSIS
     Dosage: 250 MG, 2/WEEK
     Dates: start: 19980716
  4. ALVERINE [Concomitant]
     Indication: DYSMENORRHOEA
     Dosage: 60 MG, TID
     Dates: start: 20020201
  5. BENDROFLUAZIDE [Concomitant]
     Indication: HYPERTENSION
     Dosage: 2.5 MG, QD
     Dates: start: 20071121
  6. OMEPRAZOLE [Concomitant]
     Indication: GASTRITIS
     Dosage: 40 MG, QD
     Dates: start: 20080319

REACTIONS (5)
  - ABDOMINAL PAIN [None]
  - CHEST PAIN [None]
  - HYPOKALAEMIA [None]
  - MALAISE [None]
  - URINARY TRACT INFECTION [None]
